FAERS Safety Report 24218827 (Version 1)
Quarter: 2024Q3

REPORT INFORMATION
  Report Type: Spontaneous
  Country: US (occurrence: US)
  Receive Date: 20240816
  Receipt Date: 20240816
  Transmission Date: 20241017
  Serious: No
  Sender: SANOFI AVENTIS
  Company Number: US-SA-SAC20240812001031

PATIENT
  Sex: Female

DRUGS (25)
  1. DUPIXENT [Suspect]
     Active Substance: DUPILUMAB
     Indication: Dermatitis atopic
     Dosage: 300 MG, QOW
     Route: 058
  2. ATORVASTATIN [Concomitant]
     Active Substance: ATORVASTATIN
     Dosage: UNK
  3. BACLOFEN [Concomitant]
     Active Substance: BACLOFEN
     Dosage: UNK
  4. BOTOX [Concomitant]
     Active Substance: ONABOTULINUMTOXINA
     Dosage: UNK; SOLUTION 200 UNIT
  5. CLOPIDOGREL [Concomitant]
     Active Substance: CLOPIDOGREL BISULFATE
     Dosage: UNK
  6. DESMOPRESSIN [Concomitant]
     Active Substance: DESMOPRESSIN
  7. ESTRADIOL [Concomitant]
     Active Substance: ESTRADIOL
  8. FLUOXETINE [Concomitant]
     Active Substance: FLUOXETINE HYDROCHLORIDE
  9. FUROSEMIDE [Concomitant]
     Active Substance: FUROSEMIDE
     Dosage: UNK
  10. GEMTESA [Concomitant]
     Active Substance: VIBEGRON
     Dosage: UNK
  11. HYDROXYZINE [Concomitant]
     Active Substance: HYDROXYZINE HYDROCHLORIDE
     Dosage: UNK
  12. IPRATROPIUM [Concomitant]
     Active Substance: IPRATROPIUM
     Dosage: UNK
  13. JARDIANCE [Concomitant]
     Active Substance: EMPAGLIFLOZIN
  14. METOPROLOL [Concomitant]
     Active Substance: METOPROLOL
  15. MONTELUKAST [Concomitant]
     Active Substance: MONTELUKAST SODIUM
  16. MOUNJARO [Concomitant]
     Active Substance: TIRZEPATIDE
     Dosage: UNK
  17. PANTOPRAZOLE [Concomitant]
     Active Substance: PANTOPRAZOLE
     Dosage: UNK
  18. PIROXICAM [Concomitant]
     Active Substance: PIROXICAM
     Dosage: UNK
  19. POTASSIUM [Concomitant]
     Active Substance: POTASSIUM
  20. PREGABALIN [Concomitant]
     Active Substance: PREGABALIN
     Dosage: UNK
  21. TOUJEO [Concomitant]
     Active Substance: INSULIN GLARGINE
     Dosage: UNK
  22. VASCEPA [Concomitant]
     Active Substance: ICOSAPENT ETHYL
     Dosage: UNK
  23. PYRIDOSTIGMINE [Concomitant]
     Active Substance: PYRIDOSTIGMINE
     Dosage: UNK
  24. SPIRONOLACTONE [Concomitant]
     Active Substance: SPIRONOLACTONE
     Dosage: UNK
  25. CARBAMAZEPINE [Concomitant]
     Active Substance: CARBAMAZEPINE
     Dosage: UNK

REACTIONS (2)
  - Fatigue [Not Recovered/Not Resolved]
  - Injection site pain [Not Recovered/Not Resolved]
